FAERS Safety Report 7621040-5 (Version None)
Quarter: 2011Q3

REPORT INFORMATION
  Report Type: 
  Country: None (occurrence: None)
  Receive Date: 20110719
  Receipt Date: 20100913
  Transmission Date: 20111222
  Serious: No
  Sender: FDA-Public Use
  Company Number: US-KINGPHARMUSA00001-K201001145

PATIENT
  Sex: Female
  Weight: 47.619 kg

DRUGS (6)
  1. LEVOXYL [Suspect]
     Dosage: 100 MCG, QD 5X/W, SKIP A DAY + 50 MCG, QD QW
     Route: 048
  2. CALCIUM CARBONATE [Concomitant]
     Dosage: 1000 MG, QD
  3. MAGNESIUM [Concomitant]
     Dosage: 250 MG, UNK
  4. LEVOXYL [Suspect]
     Indication: THYROIDECTOMY
     Dosage: 100 MCG, UNK
     Route: 048
     Dates: start: 20080101
  5. CALCIUM CARBONATE [Concomitant]
     Dosage: 1500 MG, UNK
  6. VITAMIN D [Concomitant]
     Dosage: 1000 MG, UNK

REACTIONS (1)
  - PALPITATIONS [None]
